FAERS Safety Report 5551099-0 (Version None)
Quarter: 2007Q4

REPORT INFORMATION
  Report Type: 
  Country: None (occurrence: None)
  Receive Date: 20071212
  Receipt Date: 20071210
  Transmission Date: 20080405
  Serious: Yes (Other)
  Sender: FDA-Public Use
  Company Number: A0698148A

PATIENT
  Age: 9 Year
  Sex: Female

DRUGS (3)
  1. ADVAIR DISKUS 100/50 [Suspect]
     Indication: ASTHMA
     Dosage: 1PUFF TWICE PER DAY
     Route: 055
     Dates: start: 20071203, end: 20071206
  2. ALBUTEROL [Concomitant]
  3. FLU SHOT [Concomitant]

REACTIONS (2)
  - ARTHROPATHY [None]
  - CIRCULATORY COLLAPSE [None]
